FAERS Safety Report 9508547 (Version 1)
Quarter: 2013Q1

REPORT INFORMATION
  Report Type: Spontaneous
  Country: US (occurrence: None)
  Receive Date: 20130305
  Receipt Date: 20130305
  Transmission Date: 20140127
  Serious: Yes (Other)
  Sender: FDA-Public Use
  Company Number: 163-21880-12083024

PATIENT
  Age: 88 Year
  Sex: Female
  Weight: 73.03 kg

DRUGS (14)
  1. REVLIMID [Suspect]
     Indication: MYELODYSPLASTIC SYNDROME
     Dosage: 5 MG, 1 IN 1 D, PO
     Route: 048
     Dates: start: 201003
  2. VITAMIN D (ERGOCALCIFEROL) [Suspect]
     Indication: PRODUCT USED FOR UNKNOWN INDICATION
  3. ASPIRIN (ACETYLSALICYLIC ACID) [Concomitant]
  4. BONIVA (IBANDRONATE SODIUM) [Concomitant]
  5. CALCIUM [Concomitant]
  6. GARLIC [Concomitant]
  7. GUIAFENSIN (GUAIFENESIN) [Concomitant]
  8. OSTEO-BIFLEX (OSTEO BI-FLEX) [Concomitant]
  9. POTASSIUM [Concomitant]
  10. PRESERVISION (OTHER THERAPEUTIC PRODUCTS) [Concomitant]
  11. PRILOSEC [Concomitant]
  12. SELENIUM [Concomitant]
  13. TORSEMIDE [Concomitant]
  14. VESICARE (SOLIFENACIN SUCCINATE) [Concomitant]

REACTIONS (3)
  - Agitation [None]
  - Dyspepsia [None]
  - Pruritus generalised [None]
